FAERS Safety Report 6145368-3 (Version None)
Quarter: 2009Q2

REPORT INFORMATION
  Report Type: 
  Country: None (occurrence: None)
  Receive Date: 20090402
  Receipt Date: 20090330
  Transmission Date: 20091009
  Serious: Yes (Other)
  Sender: FDA-Public Use
  Company Number: 1000005545

PATIENT

DRUGS (1)
  1. BYSTOLIC [Suspect]
     Dosage: 5 MG; 2.5 MG

REACTIONS (2)
  - BLOOD PRESSURE INCREASED [None]
  - HYPOTENSION [None]
